FAERS Safety Report 19052388 (Version 1)
Quarter: 2021Q1

REPORT INFORMATION
  Report Type: Spontaneous
  Country: US (occurrence: US)
  Receive Date: 20210324
  Receipt Date: 20210324
  Transmission Date: 20210420
  Serious: No
  Sender: FDA-Public Use
  Company Number: US-JNJFOC-20210320169

PATIENT
  Age: 7 Decade
  Sex: Female

DRUGS (1)
  1. WOMENS ROGAINE UNSCENTED [Suspect]
     Active Substance: MINOXIDIL
     Indication: ALOPECIA
     Dosage: A LITTLE LESS HALF A CAP FULL ONCE A DAY
     Route: 065
     Dates: start: 202102, end: 2021

REACTIONS (4)
  - Application site rash [Recovering/Resolving]
  - Application site pain [Recovered/Resolved]
  - Application site warmth [Recovered/Resolved]
  - Underdose [Unknown]

NARRATIVE: CASE EVENT DATE: 202102
